FAERS Safety Report 5481136-3 (Version None)
Quarter: 2007Q4

REPORT INFORMATION
  Report Type: 
  Country: None (occurrence: None)
  Receive Date: 20071004
  Receipt Date: 20070925
  Transmission Date: 20080405
  Serious: Yes (Other)
  Sender: FDA-Public Use
  Company Number: 237364K07USA

PATIENT
  Age: 56 Year
  Sex: Female

DRUGS (6)
  1. REBIF [Suspect]
     Indication: MULTIPLE SCLEROSIS
     Dosage: 44 MCG, 3 IN 1 WEEKS, SUBCUTANEOUS
     Route: 058
     Dates: start: 20070227, end: 20070701
  2. OXYBUTYNIN CHLORIDE [Concomitant]
  3. PROVIGIL [Concomitant]
  4. SOLU-MEDROL [Concomitant]
  5. SERTRALINE [Concomitant]
  6. AMANTADINE HCL [Concomitant]

REACTIONS (3)
  - BIOPSY LIVER ABNORMAL [None]
  - HEPATITIS [None]
  - SPLENOMEGALY [None]
